FAERS Safety Report 5352427-1 (Version None)
Quarter: 2007Q2

REPORT INFORMATION
  Report Type: 
  Country: None (occurrence: None)
  Receive Date: 20070611
  Receipt Date: 20070605
  Transmission Date: 20071010
  Serious: Yes (Death)
  Sender: FDA-Public Use
  Company Number: A0619231A

PATIENT
  Age: 14 Year
  Sex: Male
  Weight: 64.1 kg

DRUGS (3)
  1. ADVAIR DISKUS 100/50 [Suspect]
     Indication: ASTHMA
     Dosage: 1PUFF TWICE PER DAY
     Route: 055
     Dates: start: 20020101, end: 20051006
  2. ALBUTEROL [Concomitant]
     Route: 055
  3. SINGULAIR [Concomitant]
     Dosage: 5MG PER DAY

REACTIONS (12)
  - AGONAL DEATH STRUGGLE [None]
  - APNOEA [None]
  - ASTHMA [None]
  - CARDIO-RESPIRATORY ARREST [None]
  - CARDIOMEGALY [None]
  - CARDIOMYOPATHY [None]
  - DYSPNOEA [None]
  - PERICARDIAL HAEMORRHAGE [None]
  - PULSE ABSENT [None]
  - RESPIRATORY DISORDER [None]
  - VISCERAL CONGESTION [None]
  - WHEEZING [None]
